FAERS Safety Report 7043394-3 (Version None)
Quarter: 2010Q4

REPORT INFORMATION
  Report Type: 
  Country: None (occurrence: None)
  Receive Date: 20101013
  Receipt Date: 20101005
  Transmission Date: 20110411
  Serious: Yes (Other)
  Sender: FDA-Public Use
  Company Number: US-BAYER-201019135BCC

PATIENT
  Age: 65 Year
  Sex: Male
  Weight: 100 kg

DRUGS (3)
  1. ALEVE (CAPLET) [Suspect]
     Indication: PAIN
     Dosage: TOTAL DAILY DOSE: 440 MG  UNIT DOSE: 220 MG
     Route: 048
     Dates: start: 20100730, end: 20100730
  2. FINASTERIDE [Concomitant]
     Route: 065
  3. DICLOFENAC SODIUM [Concomitant]
     Route: 065

REACTIONS (5)
  - CHOKING SENSATION [None]
  - DYSPNOEA [None]
  - HYPERSENSITIVITY [None]
  - OEDEMA PERIPHERAL [None]
  - TINNITUS [None]
